FAERS Safety Report 7716431-8 (Version None)
Quarter: 2011Q3

REPORT INFORMATION
  Report Type: 
  Country: None (occurrence: None)
  Receive Date: 20110829
  Receipt Date: 20110822
  Transmission Date: 20111222
  Serious: Yes (Other)
  Sender: FDA-Public Use
  Company Number: PHHY2011GB74974

PATIENT
  Sex: Female

DRUGS (1)
  1. LORAZEPAM [Suspect]
     Dosage: 2 MG, UNK
     Route: 065

REACTIONS (2)
  - INTENTIONAL SELF-INJURY [None]
  - AGGRESSION [None]
